FAERS Safety Report 19388283 (Version 1)
Quarter: 2021Q2

REPORT INFORMATION
  Report Type: Spontaneous
  Country: US (occurrence: US)
  Receive Date: 20210607
  Receipt Date: 20210607
  Transmission Date: 20210717
  Serious: Yes (Hospitalization)
  Sender: FDA-Public Use
  Company Number: None

PATIENT
  Sex: Male

DRUGS (1)
  1. HYDROXYUREA. [Suspect]
     Active Substance: HYDROXYUREA
     Dosage: ?          OTHER FREQUENCY:1 MWF / 2 TTSS;?
     Route: 048
     Dates: start: 20190801

REACTIONS (1)
  - Dizziness [None]
